FAERS Safety Report 22621680 (Version 1)
Quarter: 2023Q2

REPORT INFORMATION
  Report Type: Spontaneous
  Country: US (occurrence: None)
  Receive Date: 20230619
  Receipt Date: 20230619
  Transmission Date: 20230721
  Serious: No
  Sender: FDA-Public Use
  Company Number: None

PATIENT
  Age: 11 Year
  Sex: Female

DRUGS (7)
  1. AMBRISENTAN [Suspect]
     Active Substance: AMBRISENTAN
     Indication: Pulmonary hypertension
  2. ALBUTEROL [Concomitant]
     Active Substance: ALBUTEROL
  3. TADALAFIL [Concomitant]
     Active Substance: TADALAFIL
  4. FLOVENT [Concomitant]
     Active Substance: FLUTICASONE PROPIONATE
  5. AMBRISENTAN [Concomitant]
     Active Substance: AMBRISENTAN
  6. DERMA SOOTHE [Concomitant]
  7. FLUOCINOLONE ACETONIDE [Concomitant]
     Active Substance: FLUOCINOLONE ACETONIDE

REACTIONS (6)
  - Therapy interrupted [None]
  - Drug ineffective [None]
  - Product dispensing issue [None]
  - Dermatitis atopic [None]
  - Insomnia [None]
  - Apnoea [None]

NARRATIVE: CASE EVENT DATE: 20230616
